FAERS Safety Report 17815967 (Version 1)
Quarter: 2020Q2

REPORT INFORMATION
  Report Type: Spontaneous
  Country: US (occurrence: US)
  Receive Date: 20200521
  Receipt Date: 20200521
  Transmission Date: 20200714
  Serious: Yes (Hospitalization)
  Sender: FDA-Public Use
  Company Number: None

PATIENT
  Age: 53 Year
  Sex: Male

DRUGS (1)
  1. IMATINIB MES TAB 100MG [Suspect]
     Active Substance: IMATINIB MESYLATE
     Route: 048
     Dates: start: 2019

REACTIONS (4)
  - Cerebrovascular accident [None]
  - Abdominal pain upper [None]
  - Headache [None]
  - Seizure [None]

NARRATIVE: CASE EVENT DATE: 20200517
